FAERS Safety Report 16051572 (Version 1)
Quarter: 2019Q1

REPORT INFORMATION
  Report Type: Spontaneous
  Country: PL (occurrence: PL)
  Receive Date: 20190308
  Receipt Date: 20190308
  Transmission Date: 20190418
  Serious: Yes (Other)
  Sender: FDA-Public Use
  Company Number: PL-TEVA-2019-PL-1020449

PATIENT
  Age: 64 Year
  Sex: Female
  Weight: 60 kg

DRUGS (3)
  1. CISPLATIN TEVA [Suspect]
     Active Substance: CISPLATIN
     Indication: UTERINE CANCER
     Route: 042
     Dates: start: 20140717, end: 20140814
  2. ENDOXAN [Suspect]
     Active Substance: CYCLOPHOSPHAMIDE
     Indication: UTERINE CANCER
     Route: 042
     Dates: start: 20140717, end: 20140814
  3. DOXORUBICIN EBEWE [Suspect]
     Active Substance: DOXORUBICIN
     Indication: UTERINE CANCER
     Dates: start: 20140717, end: 20140814

REACTIONS (2)
  - Neutropenia [Recovering/Resolving]
  - Agranulocytosis [Recovering/Resolving]

NARRATIVE: CASE EVENT DATE: 20140903
